FAERS Safety Report 11894706 (Version 1)
Quarter: 2016Q1

REPORT INFORMATION
  Report Type: Spontaneous
  Country: US (occurrence: US)
  Receive Date: 20160107
  Receipt Date: 20160107
  Transmission Date: 20160526
  Serious: No
  Sender: FDA-Public Use
  Company Number: US-APOTEX-2015AP010203

PATIENT
  Sex: Male
  Weight: 87 kg

DRUGS (3)
  1. PROPANOLOL                         /00030001/ [Concomitant]
     Active Substance: PROPRANOLOL HYDROCHLORIDE
     Indication: BLOOD PRESSURE MANAGEMENT
     Dosage: 20 MG, UNK
     Route: 065
  2. TRAZODONE HYDROCHLORIDE. [Suspect]
     Active Substance: TRAZODONE HYDROCHLORIDE
     Indication: PRODUCT USED FOR UNKNOWN INDICATION
     Route: 065
  3. LYRICA [Suspect]
     Active Substance: PREGABALIN
     Indication: NEUROPATHY PERIPHERAL
     Dosage: 300 MG; 2 PILLS IN MORNING, 2 PILLS IN AFTERNOON AND 3 PILLS IN THE EVENING
     Route: 065

REACTIONS (6)
  - Vision blurred [Recovered/Resolved]
  - Asthenia [Recovered/Resolved]
  - Memory impairment [Recovered/Resolved]
  - Reading disorder [Recovered/Resolved]
  - Dizziness [Recovered/Resolved]
  - Disturbance in attention [Recovered/Resolved]
